FAERS Safety Report 9024041 (Version 2)
Quarter: 2013Q1

REPORT INFORMATION
  Report Type: Report from Study
  Country: GB (occurrence: GB)
  Receive Date: 20130122
  Receipt Date: 20130213
  Transmission Date: 20140127
  Serious: Yes (Death, Hospitalization)
  Sender: FDA-Public Use
  Company Number: GB-BRISTOL-MYERS SQUIBB COMPANY-17242322

PATIENT
  Age: 75 Year
  Sex: Female
  Weight: 60 kg

DRUGS (3)
  1. IPILIMUMAB [Suspect]
     Indication: SMALL CELL LUNG CANCER
     Dosage: RECENT DOSE 30NOV12
     Dates: start: 20121130, end: 20121130
  2. CARBOPLATIN [Suspect]
     Indication: SMALL CELL LUNG CANCER
     Dosage: RECENT DOSE 30NOV12
     Dates: start: 20121018
  3. ETOPOSIDE [Suspect]
     Indication: SMALL CELL LUNG CANCER
     Dosage: RECENT DOSE 30NOV12
     Dates: start: 20121018

REACTIONS (2)
  - Cardio-respiratory arrest [Fatal]
  - Diarrhoea [Recovering/Resolving]
